FAERS Safety Report 6367554-X (Version None)
Quarter: 2009Q3

REPORT INFORMATION
  Report Type: 
  Country: None (occurrence: None)
  Receive Date: 20090921
  Receipt Date: 20090915
  Transmission Date: 20100115
  Serious: Yes (Hospitalization)
  Sender: FDA-Public Use
  Company Number: JP-GENENTECH-290447

PATIENT
  Age: 50 Year
  Sex: Male

DRUGS (4)
  1. RITUXAN [Suspect]
     Indication: B-CELL LYMPHOMA
     Route: 042
  2. ENDOXAN [Suspect]
     Indication: B-CELL LYMPHOMA
  3. ONCOVIN [Suspect]
     Indication: B-CELL LYMPHOMA
  4. PREDONINE [Suspect]
     Indication: B-CELL LYMPHOMA

REACTIONS (1)
  - HEPATIC ENCEPHALOPATHY [None]
